FAERS Safety Report 9649869 (Version 3)
Quarter: 2014Q2

REPORT INFORMATION
  Report Type: Spontaneous
  Country: US (occurrence: US)
  Receive Date: 20131028
  Receipt Date: 20140418
  Transmission Date: 20141212
  Serious: Yes (Death)
  Sender: FDA-Public Use
  Company Number: US-NAPPMUNDI-USA-2010-0045181

PATIENT
  Age: 21 Year
  Sex: Male
  Weight: 76.64 kg

DRUGS (4)
  1. OXYCONTIN TABLETS [Suspect]
     Indication: DRUG ABUSE
  2. XANAX [Suspect]
     Indication: ANXIETY
  3. ALCOHOL [Suspect]
     Indication: ALCOHOL USE
  4. SOMA [Concomitant]
     Indication: MUSCLE RELAXANT THERAPY

REACTIONS (3)
  - Accidental overdose [Fatal]
  - Substance abuse [Fatal]
  - Respiratory arrest [Fatal]
